FAERS Safety Report 7771071-X (Version None)
Quarter: 2011Q3

REPORT INFORMATION
  Report Type: 
  Country: None (occurrence: None)
  Receive Date: 20110922
  Receipt Date: 20110603
  Transmission Date: 20111222
  Serious: Yes (Other)
  Sender: FDA-Public Use
  Company Number: US-ASTRAZENECA-2011SE34185

PATIENT
  Sex: Female

DRUGS (4)
  1. XANAX [Concomitant]
  2. PRISTIQ [Concomitant]
  3. SEROQUEL [Suspect]
     Indication: BIPOLAR DISORDER
     Route: 048
     Dates: start: 20090101
  4. DIAZEPAM [Concomitant]

REACTIONS (4)
  - IMPULSIVE BEHAVIOUR [None]
  - SOCIAL AVOIDANT BEHAVIOUR [None]
  - DRUG DOSE OMISSION [None]
  - SUICIDAL IDEATION [None]
